FAERS Safety Report 10499144 (Version 1)
Quarter: 2014Q4

REPORT INFORMATION
  Report Type: Spontaneous
  Country: US (occurrence: US)
  Receive Date: 20141006
  Receipt Date: 20141006
  Transmission Date: 20150528
  Serious: No
  Sender: FDA-Public Use
  Company Number: US-AMGEN INC.-USASP2014019750

PATIENT
  Age: 61 Year
  Sex: Female

DRUGS (3)
  1. XELODA [Concomitant]
     Active Substance: CAPECITABINE
  2. XGEVA [Suspect]
     Active Substance: DENOSUMAB
  3. XGEVA [Suspect]
     Active Substance: DENOSUMAB
     Indication: PROPHYLAXIS
     Dosage: UNK
     Route: 065

REACTIONS (6)
  - Incorrect product storage [Unknown]
  - Skin discolouration [Unknown]
  - Drug ineffective [Unknown]
  - Rash pustular [Unknown]
  - Nail discolouration [Unknown]
  - Sweat discolouration [Unknown]
